FAERS Safety Report 9286917 (Version 2)
Quarter: 2013Q2

REPORT INFORMATION
  Report Type: Spontaneous
  Country: GB (occurrence: None)
  Receive Date: 20130509
  Receipt Date: 20130514
  Transmission Date: 20140414
  Serious: Yes (Other)
  Sender: FDA-Public Use
  Company Number: AUR-APL-2013-03735

PATIENT
  Age: 51 Year
  Sex: Male
  Weight: 73 kg

DRUGS (2)
  1. AMOXICILLIN+CLAVULANIC ACID [Suspect]
     Indication: PRODUCT USED FOR UNKNOWN INDICATION
     Dates: start: 20130415
  2. AMOXICILLIN (AMOXICILLIN) [Concomitant]

REACTIONS (5)
  - Drug-induced liver injury [None]
  - Haemorrhage [None]
  - Mouth ulceration [None]
  - Abdominal pain upper [None]
  - Chromaturia [None]
